FAERS Safety Report 22541122 (Version 1)
Quarter: 2023Q2

REPORT INFORMATION
  Report Type: Spontaneous
  Country: US (occurrence: US)
  Receive Date: 20230609
  Receipt Date: 20230609
  Transmission Date: 20230722
  Serious: Yes (Hospitalization, Other)
  Sender: FDA-Public Use
  Company Number: US-BAYER-2023A076297

PATIENT
  Age: 78 Year
  Sex: Male

DRUGS (1)
  1. ASPIRIN [Interacting]
     Active Substance: ASPIRIN

REACTIONS (13)
  - Haematochezia [None]
  - Rectal ulcer [None]
  - Large intestinal ulcer [None]
  - Rectal polyp [None]
  - Gastric varices haemorrhage [None]
  - Melaena [None]
  - Gastric varices [None]
  - Gastrointestinal vascular malformation haemorrhagic [None]
  - Gastrointestinal haemorrhage [None]
  - Pneumoperitoneum [None]
  - Intestinal perforation [None]
  - Labelled drug-drug interaction medication error [None]
  - Portal hypertensive colopathy [None]
